FAERS Safety Report 15809283 (Version 1)
Quarter: 2019Q1

REPORT INFORMATION
  Report Type: Spontaneous
  Country: BG (occurrence: BG)
  Receive Date: 20190110
  Receipt Date: 20190110
  Transmission Date: 20190417
  Serious: Yes (Hospitalization, Other)
  Sender: FDA-Public Use
  Company Number: PHHY2019BG001413

PATIENT
  Age: 55 Year
  Sex: Female

DRUGS (1)
  1. INTERFERON BETA-1B [Suspect]
     Active Substance: INTERFERON BETA-1B
     Indication: MULTIPLE SCLEROSIS
     Dosage: 8 IU, QOD
     Route: 058
     Dates: start: 200910

REACTIONS (12)
  - Visual impairment [Unknown]
  - Musculoskeletal disorder [Unknown]
  - Vision blurred [Unknown]
  - Vertigo [Recovering/Resolving]
  - Multiple sclerosis relapse [Recovering/Resolving]
  - Visual impairment [Unknown]
  - Paraesthesia [Unknown]
  - Seizure [Unknown]
  - Dysuria [Unknown]
  - Gait disturbance [Unknown]
  - Formication [Unknown]
  - Muscular weakness [Unknown]

NARRATIVE: CASE EVENT DATE: 201011
